FAERS Safety Report 9985552 (Version 2)
Quarter: 2014Q1

REPORT INFORMATION
  Report Type: Spontaneous
  Country: US (occurrence: US)
  Receive Date: 20140307
  Receipt Date: 20140307
  Transmission Date: 20141002
  Serious: No
  Sender: FDA-Public Use
  Company Number: US-GILEAD-2012-0060326

PATIENT
  Age: 34 Year
  Sex: Female

DRUGS (3)
  1. TRUVADA [Suspect]
     Indication: PROPHYLAXIS AGAINST HIV INFECTION
     Route: 048
  2. HYDROCHLOROTHIAZIDE [Concomitant]
     Indication: PRODUCT USED FOR UNKNOWN INDICATION
     Dosage: UNK
     Dates: start: 2007
  3. METFORMIN [Concomitant]
     Indication: PRODUCT USED FOR UNKNOWN INDICATION
     Dosage: UNK
     Dates: start: 2007

REACTIONS (1)
  - Drug eruption [Recovered/Resolved]
